FAERS Safety Report 4619141-9 (Version None)
Quarter: 2005Q1

REPORT INFORMATION
  Report Type: 
  Country: None (occurrence: None)
  Receive Date: 20050325
  Receipt Date: 20050316
  Transmission Date: 20050727
  Serious: Yes (Other)
  Sender: FDA-Public Use
  Company Number: US-GLAXOSMITHKLINE-A0550699A

PATIENT
  Age: 23 Year
  Sex: Female

DRUGS (2)
  1. RETROVIR [Suspect]
     Indication: HIV INFECTION
     Dosage: 300MG TWICE PER DAY
     Route: 048
     Dates: start: 20040701, end: 20050307
  2. TRIZIVIR [Concomitant]
     Indication: HIV INFECTION
     Dosage: 1TAB TWICE PER DAY
     Dates: start: 20050307

REACTIONS (4)
  - DRUG EXPOSURE DURING PREGNANCY [None]
  - PERICARDIAL EFFUSION [None]
  - PREGNANCY [None]
  - ULTRASOUND SCAN ABNORMAL [None]
